FAERS Safety Report 24613229 (Version 3)
Quarter: 2025Q1

REPORT INFORMATION
  Report Type: Report from Study
  Country: US (occurrence: US)
  Receive Date: 20241113
  Receipt Date: 20250109
  Transmission Date: 20250409
  Serious: Yes (Hospitalization)
  Sender: BAYER HEALTHCARE PHARMACEUTICALS INC.
  Company Number: US-BAYER-2024A159570

PATIENT
  Age: 45 Year
  Sex: Female

DRUGS (7)
  1. ADEMPAS [Suspect]
     Active Substance: RIOCIGUAT
     Indication: Pulmonary arterial hypertension
  2. ADEMPAS [Suspect]
     Active Substance: RIOCIGUAT
     Indication: Pulmonary arterial hypertension
     Dosage: 2 MG, TID
     Route: 048
     Dates: start: 202410
  3. ADEMPAS [Suspect]
     Active Substance: RIOCIGUAT
     Indication: Pulmonary arterial hypertension
     Dosage: 2 MG, BID
     Route: 048
     Dates: start: 202410
  4. UPTRAVI [Suspect]
     Active Substance: SELEXIPAG
  5. UPTRAVI [Suspect]
     Active Substance: SELEXIPAG
     Dosage: 200 MCG
  6. UPTRAVI [Suspect]
     Active Substance: SELEXIPAG
  7. OPSUMIT [Concomitant]
     Active Substance: MACITENTAN

REACTIONS (5)
  - Chest pain [None]
  - Dyspnoea [None]
  - Laboratory test abnormal [None]
  - Adverse drug reaction [Not Recovered/Not Resolved]
  - Inappropriate schedule of product administration [None]

NARRATIVE: CASE EVENT DATE: 20241001
